FAERS Safety Report 13493791 (Version 2)
Quarter: 2017Q2

REPORT INFORMATION
  Report Type: Report from Study
  Country: AU (occurrence: AU)
  Receive Date: 20170427
  Receipt Date: 20170627
  Transmission Date: 20170830
  Serious: Yes (Other)
  Sender: FDA-Public Use
  Company Number: AU-REGENERON PHARMACEUTICALS, INC.-2017-15115

PATIENT

DRUGS (2)
  1. EYLEA [Suspect]
     Active Substance: AFLIBERCEPT
     Dosage: UNK, Q2WK (EVERY 15 DAYS)
     Route: 031
     Dates: start: 20150601
  2. EYLEA [Suspect]
     Active Substance: AFLIBERCEPT
     Indication: RETINAL VEIN OCCLUSION
     Dosage: UNK
     Route: 031
     Dates: start: 20150601

REACTIONS (3)
  - Eye haemorrhage [Unknown]
  - Product use issue [Unknown]
  - Eye disorder [Unknown]

NARRATIVE: CASE EVENT DATE: 201612
